FAERS Safety Report 17168813 (Version 1)
Quarter: 2019Q4

REPORT INFORMATION
  Report Type: Spontaneous
  Country: DE (occurrence: DE)
  Receive Date: 20191218
  Receipt Date: 20191218
  Transmission Date: 20200122
  Serious: Yes (Hospitalization, Other)
  Sender: FDA-Public Use
  Company Number: DE-CIRCASSIA PHARMACEUTICALS INC.-2019DE011944

PATIENT
  Sex: Female

DRUGS (1)
  1. ACLIDINIUM BROMIDE. [Suspect]
     Active Substance: ACLIDINIUM BROMIDE
     Indication: CHRONIC OBSTRUCTIVE PULMONARY DISEASE
     Dosage: UNK
     Route: 055

REACTIONS (3)
  - Palpitations [Unknown]
  - Fracture [Unknown]
  - Device defective [Unknown]
